FAERS Safety Report 4684517-0 (Version None)
Quarter: 2005Q2

REPORT INFORMATION
  Report Type: 
  Country: None (occurrence: None)
  Receive Date: 20050603
  Receipt Date: 20050526
  Transmission Date: 20051028
  Serious: Yes (Hospitalization, Other)
  Sender: FDA-Public Use
  Company Number: USA-2004-0015729

PATIENT
  Age: 63 Year
  Sex: Female

DRUGS (24)
  1. OXYCONTIN [Suspect]
     Indication: PAIN
     Dosage: 10 MG, Q8H, UNKNOWN
  2. OXYCODONE HCL [Concomitant]
  3. RELAFEN [Concomitant]
  4. WELLBUTRIN [Concomitant]
  5. ALTACE [Concomitant]
  6. PROTONIX [Concomitant]
  7. ELAVIL [Concomitant]
  8. ATENOLOL [Concomitant]
  9. ZOLOFT [Concomitant]
  10. CENESTIN [Concomitant]
  11. MAVIK [Concomitant]
  12. ENAPRIL (ENALAPRIL) [Concomitant]
  13. ORTHO-EST [Concomitant]
  14. MIACALCIN [Concomitant]
  15. HYDROCHLOROTHIAZIDE [Concomitant]
  16. POTASSIUM CHLORIDE [Concomitant]
  17. MULTIPLE VITAMINS (ASCORBIC ACID, ERGOCALCIFEROL, FOLIC ACID, RETINOL, [Concomitant]
  18. UNK [Concomitant]
  19. VITAMIN E [Concomitant]
  20. CALCIUM GLUCONATE [Concomitant]
  21. RITALIN [Concomitant]
  22. FERROUS SULFATE TAB [Concomitant]
  23. AZMACORT [Concomitant]
  24. ACTONEL [Concomitant]

REACTIONS (26)
  - ARTHRALGIA [None]
  - ASCITES [None]
  - BACK PAIN [None]
  - BREAST MASS [None]
  - BRONCHITIS [None]
  - BUTTOCK PAIN [None]
  - CANDIDIASIS [None]
  - CERUMEN IMPACTION [None]
  - COUGH [None]
  - DEPRESSION [None]
  - DRUG DEPENDENCE [None]
  - DRUG WITHDRAWAL SYNDROME [None]
  - HEPATIC STEATOSIS [None]
  - HYPOKALAEMIA [None]
  - LEUKOCYTOSIS [None]
  - MIGRAINE [None]
  - OBSESSIVE-COMPULSIVE DISORDER [None]
  - ORAL PAIN [None]
  - PAIN [None]
  - PAIN IN EXTREMITY [None]
  - PANCREATITIS ACUTE [None]
  - PARANOIA [None]
  - PAROTID GLAND ENLARGEMENT [None]
  - PHARYNGOLARYNGEAL PAIN [None]
  - SINUSITIS [None]
  - STOMATITIS [None]
